FAERS Safety Report 17210564 (Version 2)
Quarter: 2020Q1

REPORT INFORMATION
  Report Type: Report from Study
  Country: US (occurrence: US)
  Receive Date: 20191227
  Receipt Date: 20200227
  Transmission Date: 20200409
  Serious: Yes (Hospitalization, Other)
  Sender: FDA-Public Use
  Company Number: US-BAYER-2019-233941

PATIENT
  Age: 81 Year
  Sex: Female

DRUGS (2)
  1. ALEVE [Suspect]
     Active Substance: NAPROXEN SODIUM
     Indication: ARTHRITIS
     Dosage: UNK
  2. HUMIRA [Suspect]
     Active Substance: ADALIMUMAB
     Indication: RHEUMATOID ARTHRITIS
     Dosage: UNK
     Route: 058

REACTIONS (23)
  - Pollakiuria [Unknown]
  - Stress [Unknown]
  - Sciatica [Unknown]
  - Drug ineffective [Not Recovered/Not Resolved]
  - Helicobacter infection [Unknown]
  - Gait disturbance [Not Recovered/Not Resolved]
  - Hypoacusis [Not Recovered/Not Resolved]
  - Haemorrhage [Unknown]
  - Joint stiffness [Unknown]
  - Peripheral swelling [None]
  - Limb injury [Recovered/Resolved]
  - Neuralgia [None]
  - Oedema peripheral [None]
  - Muscular weakness [Unknown]
  - Myalgia [None]
  - Vitamin D abnormal [Unknown]
  - Rheumatoid arthritis [Unknown]
  - Rash [Not Recovered/Not Resolved]
  - Pruritus [Not Recovered/Not Resolved]
  - Dysphonia [Unknown]
  - Weight decreased [Unknown]
  - Wound dehiscence [Unknown]
  - Feeling cold [Unknown]

NARRATIVE: CASE EVENT DATE: 2017
